FAERS Safety Report 24710043 (Version 2)
Quarter: 2024Q4

REPORT INFORMATION
  Report Type: Report from Study
  Country: CA (occurrence: CA)
  Receive Date: 20241209
  Receipt Date: 20241224
  Transmission Date: 20250114
  Serious: Yes (Hospitalization, Other)
  Sender: ABBVIE
  Company Number: CA-ABBVIE-6034196

PATIENT
  Sex: Male

DRUGS (2)
  1. RINVOQ [Suspect]
     Active Substance: UPADACITINIB
     Indication: Crohn^s disease
     Dosage: FORM STRENGTH: 30 MILLIGRAM
     Route: 048
     Dates: start: 20231027
  2. RINVOQ [Suspect]
     Active Substance: UPADACITINIB
     Indication: Crohn^s disease
     Route: 048
     Dates: start: 2024

REACTIONS (22)
  - Anastomotic ulcer haemorrhage [Unknown]
  - Faeces discoloured [Unknown]
  - Haematochezia [Unknown]
  - Hyperhidrosis [Unknown]
  - Dizziness [Unknown]
  - Inflammation of wound [Unknown]
  - Abdominal pain [Unknown]
  - Frequent bowel movements [Unknown]
  - Gastritis [Unknown]
  - Mucosal ulceration [Unknown]
  - Colitis [Unknown]
  - Dyspnoea [Unknown]
  - Dyspnoea [Not Recovered/Not Resolved]
  - Haematochezia [Unknown]
  - Melaena [Unknown]
  - Abdominal distension [Unknown]
  - Fatigue [Unknown]
  - Asthenia [Unknown]
  - Cardiac murmur [Unknown]
  - Abdominal tenderness [Unknown]
  - Abnormal faeces [Unknown]
  - Colitis [Unknown]

NARRATIVE: CASE EVENT DATE: 20240101
